FAERS Safety Report 9475441 (Version 5)
Quarter: 2015Q3

REPORT INFORMATION
  Report Type: Spontaneous
  Country: US (occurrence: US)
  Receive Date: 20130826
  Receipt Date: 20150923
  Transmission Date: 20151125
  Serious: Yes (Other)
  Sender: FDA-Public Use
  Company Number: US-BIOGENIDEC-2013BI076462

PATIENT
  Sex: Female
  Weight: 79 kg

DRUGS (15)
  1. CRANBERRY. [Concomitant]
     Active Substance: CRANBERRY
  2. TIZANIDINE. [Concomitant]
     Active Substance: TIZANIDINE
  3. COD LIVER OIL [Concomitant]
     Active Substance: COD LIVER OIL
  4. LUNESTA [Concomitant]
     Active Substance: ESZOPICLONE
  5. FIORINAL [Concomitant]
     Active Substance: ASPIRIN\BUTALBITAL\CAFFEINE
  6. FLUDROCORTISONE [Concomitant]
     Active Substance: FLUDROCORTISONE
  7. CITALOPRAM [Concomitant]
     Active Substance: CITALOPRAM HYDROBROMIDE
  8. AMPYRA [Concomitant]
     Active Substance: DALFAMPRIDINE
     Indication: GAIT DISTURBANCE
     Route: 048
     Dates: start: 2010, end: 2010
  9. VITAMIN B12 [Concomitant]
     Active Substance: CYANOCOBALAMIN
  10. AMPYRA [Concomitant]
     Active Substance: DALFAMPRIDINE
     Indication: GAIT DISTURBANCE
     Route: 048
     Dates: start: 20130712, end: 2013
  11. VITAMIN D [Concomitant]
     Active Substance: CHOLECALCIFEROL
  12. METHENAMINE MANDELATE. [Concomitant]
     Active Substance: METHENAMINE MANDELATE
  13. TECFIDERA [Suspect]
     Active Substance: DIMETHYL FUMARATE
     Indication: MULTIPLE SCLEROSIS
     Dates: start: 201307, end: 2013
  14. OXYBUTYNIN CHLORIDE. [Concomitant]
     Active Substance: OXYBUTYNIN CHLORIDE
  15. AMPYRA [Concomitant]
     Active Substance: DALFAMPRIDINE
     Indication: GAIT DISTURBANCE
     Dates: start: 201309

REACTIONS (7)
  - Hypersensitivity [Recovered/Resolved]
  - Peripheral swelling [Recovered/Resolved]
  - Abdominal discomfort [Recovered/Resolved]
  - Nausea [Recovered/Resolved]
  - Influenza like illness [Recovered/Resolved]
  - Swelling [Recovered/Resolved]
  - Abdominal distension [Recovered/Resolved]
